FAERS Safety Report 6749706-X (Version None)
Quarter: 2010Q2

REPORT INFORMATION
  Report Type: 
  Country: None (occurrence: None)
  Receive Date: 20100527
  Receipt Date: 20100527
  Transmission Date: 20101027
  Serious: No
  Sender: FDA-Public Use
  Company Number: None

PATIENT
  Age: 40 Year
  Sex: Female
  Weight: 144.2439 kg

DRUGS (2)
  1. MICARDIS [Suspect]
     Indication: COUGH
     Dosage: 80MG QD ORAL
     Route: 048
     Dates: start: 20090803, end: 20090924
  2. LISINOPRIL [Suspect]
     Indication: COUGH
     Dosage: 10MG QD ORAL
     Route: 048
     Dates: start: 20080605, end: 20090803

REACTIONS (1)
  - COUGH [None]
